FAERS Safety Report 16771096 (Version 1)
Quarter: 2019Q3

REPORT INFORMATION
  Report Type: Spontaneous
  Country: US (occurrence: US)
  Receive Date: 20190904
  Receipt Date: 20190904
  Transmission Date: 20191005
  Serious: Yes (Hospitalization, Other)
  Sender: FDA-Public Use
  Company Number: US-GLAXOSMITHKLINE-US2019AMR157950

PATIENT
  Sex: Male
  Weight: 73.16 kg

DRUGS (1)
  1. ANORO ELLIPTA [Suspect]
     Active Substance: UMECLIDINIUM BROMIDE\VILANTEROL TRIFENATATE
     Indication: PRODUCT USED FOR UNKNOWN INDICATION
     Dosage: UNK
     Route: 065

REACTIONS (9)
  - Chronic obstructive pulmonary disease [Unknown]
  - Pharyngeal ulceration [Unknown]
  - Pneumonitis [Unknown]
  - Tobacco abuse [Unknown]
  - Lung infection [Unknown]
  - Pulmonary mass [Unknown]
  - Back pain [Unknown]
  - Dyspnoea [Unknown]
  - Emphysema [Unknown]
